FAERS Safety Report 25427883 (Version 1)
Quarter: 2025Q2

REPORT INFORMATION
  Report Type: Report from Study
  Country: SE (occurrence: SE)
  Receive Date: 20250612
  Receipt Date: 20250612
  Transmission Date: 20250716
  Serious: Yes (Hospitalization, Other)
  Sender: MYLAN
  Company Number: SE-MYLANLABS-2025M1048325

PATIENT
  Age: 23 Year
  Sex: Female

DRUGS (12)
  1. PREDNISONE [Suspect]
     Active Substance: PREDNISONE
     Indication: Colitis ulcerative
  2. PREDNISONE [Suspect]
     Active Substance: PREDNISONE
     Route: 065
  3. PREDNISONE [Suspect]
     Active Substance: PREDNISONE
     Route: 065
  4. PREDNISONE [Suspect]
     Active Substance: PREDNISONE
  5. AZATHIOPRINE [Suspect]
     Active Substance: AZATHIOPRINE
     Indication: Colitis ulcerative
  6. AZATHIOPRINE [Suspect]
     Active Substance: AZATHIOPRINE
     Route: 065
  7. AZATHIOPRINE [Suspect]
     Active Substance: AZATHIOPRINE
     Route: 065
  8. AZATHIOPRINE [Suspect]
     Active Substance: AZATHIOPRINE
  9. BETAMETHASONE [Suspect]
     Active Substance: BETAMETHASONE
     Indication: Colitis ulcerative
     Dosage: 4 MILLIGRAM, BID
  10. BETAMETHASONE [Suspect]
     Active Substance: BETAMETHASONE
     Dosage: 4 MILLIGRAM, BID
     Route: 042
  11. BETAMETHASONE [Suspect]
     Active Substance: BETAMETHASONE
     Dosage: 4 MILLIGRAM, BID
     Route: 042
  12. BETAMETHASONE [Suspect]
     Active Substance: BETAMETHASONE
     Dosage: 4 MILLIGRAM, BID

REACTIONS (2)
  - Drug ineffective [Unknown]
  - Insulin resistance [Recovered/Resolved]
